FAERS Safety Report 13002693 (Version 4)
Quarter: 2016Q4

REPORT INFORMATION
  Report Type: Spontaneous
  Country: GB (occurrence: GB)
  Receive Date: 20161206
  Receipt Date: 20161228
  Transmission Date: 20170207
  Serious: Yes (Hospitalization)
  Sender: FDA-Public Use
  Company Number: GB-PFIZER INC-2016562813

PATIENT
  Age: 70 Year

DRUGS (5)
  1. EPLERENONE. [Suspect]
     Active Substance: EPLERENONE
     Dosage: 25 MG, 1X/DAY
     Route: 065
  2. RAMIPRIL. [Suspect]
     Active Substance: RAMIPRIL
     Dosage: 10 MG, DAILY
     Route: 048
     Dates: end: 20161004
  3. LANSOPRAZOLE. [Suspect]
     Active Substance: LANSOPRAZOLE
     Dosage: 30 MG, 1X/DAY
     Route: 065
  4. WARFARIN [Suspect]
     Active Substance: WARFARIN
     Indication: ATRIAL FIBRILLATION
     Dosage: UNK (AS PER INR)
     Route: 048
     Dates: end: 20161004
  5. FUROSEMIDE. [Suspect]
     Active Substance: FUROSEMIDE
     Dosage: 40 MG, 1X/DAY
     Route: 065

REACTIONS (3)
  - Hypoperfusion [Unknown]
  - Haemorrhage [Recovered/Resolved]
  - Acute kidney injury [Unknown]

NARRATIVE: CASE EVENT DATE: 20161004
